FAERS Safety Report 9494145 (Version 1)
Quarter: 2013Q3

REPORT INFORMATION
  Report Type: Spontaneous
  Country: US (occurrence: None)
  Receive Date: 20130828
  Receipt Date: 20130828
  Transmission Date: 20140515
  Serious: Yes (Hospitalization)
  Sender: FDA-Public Use
  Company Number: 2013US002108

PATIENT
  Age: 56 Year
  Sex: Female
  Weight: 49 kg

DRUGS (1)
  1. ICLUSIG (PONATINIB) TABLET, 45 MG [Suspect]
     Indication: ACUTE LYMPHOCYTIC LEUKAEMIA
     Route: 048
     Dates: start: 201306

REACTIONS (2)
  - Graft versus host disease in skin [None]
  - Graft versus host disease in intestine [None]
